FAERS Safety Report 20110875 (Version 1)
Quarter: 2021Q4

REPORT INFORMATION
  Report Type: Report from Study
  Country: US (occurrence: US)
  Receive Date: 20211124
  Receipt Date: 20211124
  Transmission Date: 20220303
  Serious: No
  Sender: FDA-Public Use
  Company Number: US-BIOVITRUM-2021US2515

PATIENT
  Age: 8 Year
  Sex: Male

DRUGS (1)
  1. KINERET [Suspect]
     Active Substance: ANAKINRA
     Indication: Urticaria
     Route: 058
     Dates: start: 20200915, end: 20211119

REACTIONS (5)
  - Fear of injection [Unknown]
  - Injection site pain [Unknown]
  - Injection site pain [Unknown]
  - Injection site haemorrhage [Unknown]
  - Off label use [Not Recovered/Not Resolved]

NARRATIVE: CASE EVENT DATE: 20200915
